FAERS Safety Report 4443975-7 (Version None)
Quarter: 2004Q3

REPORT INFORMATION
  Report Type: 
  Country: None (occurrence: None)
  Receive Date: 20040729
  Receipt Date: 20040525
  Transmission Date: 20050211
  Serious: Yes (Hospitalization)
  Sender: FDA-Public Use
  Company Number: US-JNJFOC-20040506431

PATIENT
  Age: 8 Year
  Sex: Male

DRUGS (6)
  1. RISPERDAL [Suspect]
     Indication: AFFECTIVE DISORDER
     Dosage: SEE IMAGE
     Route: 048
     Dates: end: 20040201
  2. RISPERDAL [Suspect]
     Indication: DISTURBANCE IN ATTENTION
     Dosage: SEE IMAGE
     Route: 048
     Dates: end: 20040201
  3. STRATTERA (ALL OTHER THERAPEUTIC PRODUCTS) [Concomitant]
  4. ZYPREXA (ALL OTHER THERAPEUTIC PRODUCTS) [Concomitant]
  5. ZYPREXA [Concomitant]
  6. ZOLOFT [Concomitant]

REACTIONS (3)
  - AKATHISIA [None]
  - DYSKINESIA [None]
  - TARDIVE DYSKINESIA [None]
